FAERS Safety Report 8935470 (Version 1)
Quarter: 2012Q4

REPORT INFORMATION
  Report Type: Spontaneous
  Country: US (occurrence: None)
  Receive Date: 20121128
  Receipt Date: 20121128
  Transmission Date: 20130627
  Serious: Yes (Hospitalization)
  Sender: FDA-Public Use
  Company Number: None

PATIENT
  Age: 64 Year
  Sex: Male
  Weight: 156.8 kg

DRUGS (13)
  1. ACETAMINOPHEN, ASPIRIN AND CAFFEINE [Suspect]
     Indication: PAIN
     Dosage: 1-2times daily
chronic
     Route: 048
  2. AMBIEN [Concomitant]
  3. ALDACTONE [Concomitant]
  4. ZOLOFT [Concomitant]
  5. PROTONIX [Concomitant]
  6. MVI [Concomitant]
  7. LISINOPRIL [Concomitant]
  8. NEURONTIN [Concomitant]
  9. COLACE [Concomitant]
  10. FLEXERIL [Concomitant]
  11. VIT C+D [Concomitant]
  12. PULMICORT [Concomitant]
  13. COMBIVENT [Concomitant]

REACTIONS (2)
  - Gastric ulcer [None]
  - Gastrointestinal haemorrhage [None]
